FAERS Safety Report 21940640 (Version 1)
Quarter: 2023Q1

REPORT INFORMATION
  Report Type: Report from Study
  Country: US (occurrence: US)
  Receive Date: 20230201
  Receipt Date: 20230201
  Transmission Date: 20230417
  Serious: No
  Sender: FDA-Public Use
  Company Number: US-EXELIXIS-CABO-22051979

PATIENT
  Age: 52 Year
  Sex: Female

DRUGS (15)
  1. CABOMETYX [Suspect]
     Active Substance: CABOZANTINIB S-MALATE
     Indication: Renal cell carcinoma
     Dosage: 40 MG
     Dates: start: 20220204
  2. CABOMETYX [Suspect]
     Active Substance: CABOZANTINIB S-MALATE
     Dosage: 40 MG, QOD
     Dates: start: 20220304
  3. CABOMETYX [Suspect]
     Active Substance: CABOZANTINIB S-MALATE
     Dosage: 20 MG, QD
     Dates: start: 20220515, end: 20220601
  4. CABOMETYX [Suspect]
     Active Substance: CABOZANTINIB S-MALATE
     Dosage: 20 MG, QD
     Dates: start: 20220605
  5. OPDIVO [Suspect]
     Active Substance: NIVOLUMAB
     Indication: Renal cell carcinoma
     Dosage: UNK, Q4WEEKS
     Route: 042
     Dates: end: 20220503
  6. AMLODIPINE [Concomitant]
     Active Substance: AMLODIPINE BESYLATE
  7. DEXAMETHASONE [Concomitant]
     Active Substance: DEXAMETHASONE
  8. GABAPENTIN [Concomitant]
     Active Substance: GABAPENTIN
  9. Glucosamine/chondroitin [Concomitant]
  10. LACTOBACILLUS ACIDOPHILUS [Concomitant]
     Active Substance: LACTOBACILLUS ACIDOPHILUS
  11. LATANOPROST [Concomitant]
     Active Substance: LATANOPROST
  12. PROCHLORPERAZINE MALEATE [Concomitant]
     Active Substance: PROCHLORPERAZINE MALEATE
  13. XARELTO [Concomitant]
     Active Substance: RIVAROXABAN
  14. MIRALAX [Concomitant]
     Active Substance: POLYETHYLENE GLYCOL 3350
  15. SUNITINIB MALATE [Concomitant]
     Active Substance: SUNITINIB MALATE

REACTIONS (13)
  - Peripheral swelling [Recovering/Resolving]
  - Blood thyroid stimulating hormone increased [Unknown]
  - Sleep disorder [Not Recovered/Not Resolved]
  - Skin exfoliation [Recovering/Resolving]
  - Weight fluctuation [Recovered/Resolved]
  - Skin ulcer [Recovering/Resolving]
  - Blood cholesterol increased [Unknown]
  - Fatigue [Not Recovered/Not Resolved]
  - Nausea [Not Recovered/Not Resolved]
  - Dysgeusia [Not Recovered/Not Resolved]
  - Constipation [Recovered/Resolved]
  - Metastases to liver [Not Recovered/Not Resolved]
  - Inappropriate schedule of product administration [Unknown]

NARRATIVE: CASE EVENT DATE: 20220201
